FAERS Safety Report 14770964 (Version 1)
Quarter: 2018Q2

REPORT INFORMATION
  Report Type: Spontaneous
  Country: US (occurrence: US)
  Receive Date: 20180417
  Receipt Date: 20180417
  Transmission Date: 20180711
  Serious: No
  Sender: FDA-Public Use
  Company Number: US-ALLERGAN-1711117US

PATIENT
  Age: 55 Year
  Sex: Female

DRUGS (6)
  1. ZOMIG [Concomitant]
     Active Substance: ZOLMITRIPTAN
     Dosage: UNK, PRN
     Route: 048
  2. RANITIDINE. [Concomitant]
     Active Substance: RANITIDINE
     Indication: GASTROOESOPHAGEAL REFLUX DISEASE
     Dosage: 20 MG, QD
     Route: 048
  3. LISINOPRIL. [Concomitant]
     Active Substance: LISINOPRIL
     Indication: HYPERTENSION
     Dosage: 7.5 MG, QD
     Route: 048
  4. NOREPINEPHRINE. [Concomitant]
     Active Substance: NOREPINEPHRINE
     Dosage: 0.35 MG, QD
     Route: 048
  5. LATISSE [Suspect]
     Active Substance: BIMATOPROST
     Indication: GROWTH OF EYELASHES
     Dosage: EVERY DAY WITH A NEW BRUSH
     Route: 061
     Dates: start: 20160714
  6. LATISSE [Suspect]
     Active Substance: BIMATOPROST
     Dosage: UNK

REACTIONS (3)
  - Drug ineffective [Unknown]
  - Blepharal pigmentation [Unknown]
  - Inappropriate schedule of drug administration [Unknown]

NARRATIVE: CASE EVENT DATE: 20160714
